FAERS Safety Report 17064048 (Version 2)
Quarter: 2019Q4

REPORT INFORMATION
  Report Type: Report from Study
  Country: GB (occurrence: GB)
  Receive Date: 20191122
  Receipt Date: 20191213
  Transmission Date: 20200122
  Serious: Yes (Disabling)
  Sender: FDA-Public Use
  Company Number: GB-PFIZER INC-2019497713

PATIENT
  Age: 50 Year
  Sex: Female
  Weight: 52.76 kg

DRUGS (12)
  1. BACTERIOSTATIC SODIUM CHLORIDE [Suspect]
     Active Substance: SODIUM CHLORIDE
     Dosage: UNK
  2. ATEZOLIZUMAB. [Suspect]
     Active Substance: ATEZOLIZUMAB
     Indication: TRIPLE NEGATIVE BREAST CANCER
     Dosage: UNK
  3. BACTERIOSTATIC SODIUM CHLORIDE [Suspect]
     Active Substance: SODIUM CHLORIDE
     Dosage: 250ML, Q14 WITH ATEZOLIZUMAB 840MG
     Route: 042
     Dates: start: 20191002
  4. ABRAXANE [Suspect]
     Active Substance: PACLITAXEL
     Indication: TRIPLE NEGATIVE BREAST CANCER
     Dosage: UNK
  5. ABRAXANE [Suspect]
     Active Substance: PACLITAXEL
     Dosage: UNK
  6. BACTERIOSTATIC SODIUM CHLORIDE [Suspect]
     Active Substance: SODIUM CHLORIDE
     Indication: MEDICATION DILUTION
     Dosage: 80ML, ADMINISTERED ON DAY 1,8,15 WITH ABRAXANE 160MG
     Route: 042
     Dates: start: 20191002
  7. ATEZOLIZUMAB. [Suspect]
     Active Substance: ATEZOLIZUMAB
     Dosage: UNK
  8. BACTERIOSTATIC SODIUM CHLORIDE [Suspect]
     Active Substance: SODIUM CHLORIDE
     Dosage: UNK
  9. ATEZOLIZUMAB. [Suspect]
     Active Substance: ATEZOLIZUMAB
     Dosage: UNK
  10. ABRAXANE [Suspect]
     Active Substance: PACLITAXEL
     Indication: BREAST CANCER METASTATIC
     Dosage: 160MG, ADMINISTERED ON DAY 1,8,15 IN 80 ML SODIUM CHLORIDE
     Route: 042
     Dates: start: 20191002
  11. ABRAXANE [Suspect]
     Active Substance: PACLITAXEL
     Dosage: UNK
  12. ATEZOLIZUMAB. [Suspect]
     Active Substance: ATEZOLIZUMAB
     Indication: BREAST CANCER METASTATIC
     Dosage: 840MG, Q14 IN 250ML SODIUM CHLORIDE
     Route: 042
     Dates: start: 20191002

REACTIONS (2)
  - Bone pain [Not Recovered/Not Resolved]
  - Headache [Not Recovered/Not Resolved]

NARRATIVE: CASE EVENT DATE: 20191002
